FAERS Safety Report 7295184-4 (Version None)
Quarter: 2011Q1

REPORT INFORMATION
  Report Type: 
  Country: None (occurrence: None)
  Receive Date: 20110216
  Receipt Date: 20101209
  Transmission Date: 20110831
  Serious: Yes (Other)
  Sender: FDA-Public Use
  Company Number: A0892238A

PATIENT
  Age: 77 Year
  Sex: Female

DRUGS (5)
  1. HYDROCHLOROTHIAZIDE [Concomitant]
  2. HEART MEDICATION [Concomitant]
  3. VOTRIENT [Suspect]
     Dosage: 400MG PER DAY
     Route: 048
     Dates: start: 20101104, end: 20101130
  4. CALCIUM [Concomitant]
  5. DIGOXIN [Concomitant]

REACTIONS (4)
  - CHANGE OF BOWEL HABIT [None]
  - LIVER FUNCTION TEST ABNORMAL [None]
  - FATIGUE [None]
  - ACTIVITIES OF DAILY LIVING IMPAIRED [None]
